FAERS Safety Report 20631033 (Version 1)
Quarter: 2022Q1

REPORT INFORMATION
  Report Type: Spontaneous
  Country: GB (occurrence: GB)
  Receive Date: 20220324
  Receipt Date: 20220324
  Transmission Date: 20220423
  Serious: Yes (Hospitalization, Other)
  Sender: FDA-Public Use
  Company Number: GB-LUPIN PHARMACEUTICALS INC.-2022-04006

PATIENT
  Sex: Female

DRUGS (8)
  1. LURASIDONE [Suspect]
     Active Substance: LURASIDONE
     Indication: Negative symptoms in schizophrenia
     Dosage: 74 MG, QD
     Route: 065
  2. QUETIAPINE FUMARATE [Suspect]
     Active Substance: QUETIAPINE FUMARATE
     Indication: Negative symptoms in schizophrenia
     Dosage: UNK (UP TO 300 MG FOR 7 MONTHS)
     Route: 065
  3. ARIPIPRAZOLE [Suspect]
     Active Substance: ARIPIPRAZOLE
     Indication: Negative symptoms in schizophrenia
     Dosage: UNK (UPTO 10 MG FOR 6 WEEKS)
     Route: 065
  4. OLANZAPINE [Suspect]
     Active Substance: OLANZAPINE
     Indication: Negative symptoms in schizophrenia
     Dosage: UNK (UP TO 20 MG FOR 6 WEEKS)
     Route: 065
  5. AMISULPRIDE [Suspect]
     Active Substance: AMISULPRIDE
     Indication: Negative symptoms in schizophrenia
     Dosage: UNK (UP TO 400 MG FOR 8 WEEKS)
     Route: 065
  6. CLOZAPINE [Concomitant]
     Active Substance: CLOZAPINE
     Indication: Negative symptoms in schizophrenia
     Dosage: 300 MG, QD (AT NIGHT)
     Route: 065
  7. CLOZAPINE [Concomitant]
     Active Substance: CLOZAPINE
     Dosage: 350 MG
     Route: 065
  8. CLOZAPINE [Concomitant]
     Active Substance: CLOZAPINE
     Dosage: 275 MG, QD
     Route: 065

REACTIONS (2)
  - Drug ineffective [Unknown]
  - Therapeutic product effect incomplete [Unknown]
